FAERS Safety Report 16661028 (Version 4)
Quarter: 2019Q3

REPORT INFORMATION
  Report Type: Spontaneous
  Country: US (occurrence: US)
  Receive Date: 20190802
  Receipt Date: 20190917
  Transmission Date: 20191004
  Serious: No
  Sender: FDA-Public Use
  Company Number: US-PFIZER INC-2018512996

PATIENT
  Age: 7 Year
  Sex: Female

DRUGS (2)
  1. XALKORI [Suspect]
     Active Substance: CRIZOTINIB
     Indication: LYMPHOMA
     Dosage: 250 MG, UNK
  2. XALKORI [Suspect]
     Active Substance: CRIZOTINIB
     Dosage: 200 MG, UNK

REACTIONS (3)
  - Product use issue [Unknown]
  - Off label use [Unknown]
  - Full blood count decreased [Unknown]
